FAERS Safety Report 7348105 (Version 2)
Quarter: 2013Q3

REPORT INFORMATION
  Report Type: Spontaneous
  Country: DE (occurrence: None)
  Receive Date: 20100322
  Receipt Date: 20130709
  Transmission Date: 20140515
  Serious: Yes (Other)
  Sender: FDA-Public Use
  Company Number: AUR-APL-2010-00672

PATIENT
  Age: 22 Year
  Sex: Male

DRUGS (2)
  1. RIBAVIRIN [Suspect]
     Indication: HEPATITIS C
     Dosage: 1000MG-QD
  2. PEGINTERFERON ALFA-2B [Suspect]
     Indication: CHRONIC HEPATITIS C
     Dosage: 1.0UG/OIW

REACTIONS (5)
  - Hyperbilirubinaemia [None]
  - Haemolytic anaemia [None]
  - Influenza like illness [None]
  - Arthralgia [None]
  - Leukopenia [None]
